FAERS Safety Report 12177999 (Version 1)
Quarter: 2016Q1

REPORT INFORMATION
  Report Type: Spontaneous
  Country: US (occurrence: None)
  Receive Date: 20160314
  Receipt Date: 20160314
  Transmission Date: 20160526
  Serious: Yes (Hospitalization)
  Sender: FDA-Public Use
  Company Number: None

PATIENT
  Age: 62 Year
  Sex: Male
  Weight: 73.6 kg

DRUGS (3)
  1. BENZTROPINE [Concomitant]
     Active Substance: BENZTROPINE
  2. HALOPERIDOL. [Concomitant]
     Active Substance: HALOPERIDOL
  3. LITHIUM CARBONATE 300MG ROXANE [Suspect]
     Active Substance: LITHIUM CARBONATE
     Indication: AFFECTIVE DISORDER
     Dosage: 300MG AM + 450MG PM ORAL BID
     Route: 048
     Dates: start: 20091007, end: 20160304

REACTIONS (9)
  - Pallor [None]
  - Hyponatraemia [None]
  - Dehydration [None]
  - Abnormal behaviour [None]
  - Slow speech [None]
  - Blood potassium decreased [None]
  - Lethargy [None]
  - Diarrhoea [None]
  - Blood creatinine increased [None]

NARRATIVE: CASE EVENT DATE: 20160303
